FAERS Safety Report 9114714 (Version 1)
Quarter: 2013Q1

REPORT INFORMATION
  Report Type: Spontaneous
  Country: US (occurrence: None)
  Receive Date: 20130220
  Receipt Date: 20130220
  Transmission Date: 20140127
  Serious: No
  Sender: FDA-Public Use
  Company Number: None

PATIENT
  Age: 82 Year
  Sex: Male
  Weight: 98.1 kg

DRUGS (1)
  1. DABIGATRAN [Suspect]
     Route: 048
     Dates: start: 20110630, end: 20121220

REACTIONS (4)
  - Nausea [None]
  - Gastric haemorrhage [None]
  - Haematemesis [None]
  - Vomiting [None]
